FAERS Safety Report 25912543 (Version 1)
Quarter: 2025Q4

REPORT INFORMATION
  Report Type: Spontaneous
  Country: UY (occurrence: UY)
  Receive Date: 20251013
  Receipt Date: 20251013
  Transmission Date: 20260118
  Serious: Yes (Life-Threatening, Hospitalization, Other)
  Sender: BRISTOL-MYERS SQUIBB COMPANY
  Company Number: UY-BRISTOL-MYERS SQUIBB COMPANY-2025-139219

PATIENT
  Age: 59 Year
  Sex: Male

DRUGS (1)
  1. OPDIVO [Suspect]
     Active Substance: NIVOLUMAB
     Indication: Bladder cancer
     Dosage: (NIVOLUMAB) INFUSION AMPOULES, VIALS/BOTTLES (ATC: L01FF)
     Dates: start: 2025

REACTIONS (2)
  - Pneumonia parainfluenzae viral [Not Recovered/Not Resolved]
  - Pulmonary tuberculosis [Not Recovered/Not Resolved]

NARRATIVE: CASE EVENT DATE: 20250101
